FAERS Safety Report 16011258 (Version 2)
Quarter: 2019Q1

REPORT INFORMATION
  Report Type: Spontaneous
  Country: US (occurrence: US)
  Receive Date: 20190227
  Receipt Date: 20190326
  Transmission Date: 20190418
  Serious: Yes (Other)
  Sender: FDA-Public Use
  Company Number: US-SA-2019SA053297

PATIENT
  Sex: Female
  Weight: 64.8 kg

DRUGS (1)
  1. KEVZARA [Suspect]
     Active Substance: SARILUMAB
     Indication: RHEUMATOID ARTHRITIS
     Dosage: 200 MG, QOW
     Route: 058
     Dates: start: 20181013

REACTIONS (5)
  - Injection site swelling [Unknown]
  - Hypersensitivity [Unknown]
  - Injection site bruising [Unknown]
  - Arthralgia [Unknown]
  - Rheumatoid arthritis [Unknown]
